FAERS Safety Report 8621974-9 (Version None)
Quarter: 2012Q3

REPORT INFORMATION
  Report Type: 
  Country: None (occurrence: None)
  Receive Date: 20120823
  Receipt Date: 20120823
  Transmission Date: 20120928
  Serious: Yes (Disabling, Other)
  Sender: FDA-Public Use
  Company Number: None

PATIENT
  Age: 49 Year
  Sex: Male
  Weight: 80.7403 kg

DRUGS (1)
  1. KEPPRA [Suspect]
     Indication: PROCEDURAL PAIN

REACTIONS (10)
  - MOOD ALTERED [None]
  - INSOMNIA [None]
  - AGITATION [None]
  - ANGER [None]
  - PAIN [None]
  - BONE DISORDER [None]
  - ACTIVITIES OF DAILY LIVING IMPAIRED [None]
  - OFF LABEL USE [None]
  - GAIT DISTURBANCE [None]
  - AGGRESSION [None]
